FAERS Safety Report 16162579 (Version 2)
Quarter: 2020Q3

REPORT INFORMATION
  Report Type: Spontaneous
  Country: FR (occurrence: FR)
  Receive Date: 20190405
  Receipt Date: 20200721
  Transmission Date: 20201102
  Serious: Yes (Hospitalization)
  Sender: FDA-Public Use
  Company Number: PHHY2019FR076070

PATIENT
  Age: 18 Year
  Sex: Female

DRUGS (4)
  1. NAPROXENE [Suspect]
     Active Substance: NAPROXEN
     Indication: OTITIS MEDIA ACUTE
     Dosage: UNK
     Route: 048
  2. ACIDE CLAVULANIQUE [Suspect]
     Active Substance: CLAVULANIC ACID
     Indication: OTITIS MEDIA ACUTE
     Dosage: INCONNUE
     Route: 048
     Dates: start: 20131212, end: 20131214
  3. AMOXICILLIN. [Suspect]
     Active Substance: AMOXICILLIN
     Indication: OTITIS MEDIA ACUTE
     Dosage: UNK
     Route: 048
     Dates: start: 20131212, end: 20131214
  4. NAPROXENE [Suspect]
     Active Substance: NAPROXEN
     Dosage: INCONNUE
     Route: 048
     Dates: end: 20181212

REACTIONS (1)
  - Meningitis aseptic [Recovered/Resolved]

NARRATIVE: CASE EVENT DATE: 20131214
